FAERS Safety Report 17757477 (Version 1)
Quarter: 2020Q2

REPORT INFORMATION
  Report Type: Spontaneous
  Country: AR (occurrence: AR)
  Receive Date: 20200507
  Receipt Date: 20200507
  Transmission Date: 20200714
  Serious: Yes (Hospitalization)
  Sender: FDA-Public Use
  Company Number: AR-PFIZER INC-2020182396

PATIENT
  Age: 67 Year
  Sex: Female

DRUGS (1)
  1. XELJANZ XR [Suspect]
     Active Substance: TOFACITINIB CITRATE
     Indication: RHEUMATOID ARTHRITIS
     Dosage: 11 MG, DAILY
     Route: 048
     Dates: start: 20180601, end: 201909

REACTIONS (13)
  - Malaise [Unknown]
  - Arthritis [Unknown]
  - Hand deformity [Unknown]
  - Arthralgia [Unknown]
  - Pain in extremity [Unknown]
  - Osteoarthritis [Unknown]
  - Spinal disorder [Unknown]
  - Muscle spasms [Unknown]
  - Musculoskeletal stiffness [Unknown]
  - Osteoporosis [Unknown]
  - Limb discomfort [Unknown]
  - Disability [Unknown]
  - Gait inability [Unknown]

NARRATIVE: CASE EVENT DATE: 201909
